FAERS Safety Report 5883049-1 (Version None)
Quarter: 2008Q3

REPORT INFORMATION
  Report Type: 
  Country: None (occurrence: None)
  Receive Date: 20080913
  Receipt Date: 20080826
  Transmission Date: 20090109
  Serious: No
  Sender: FDA-Public Use
  Company Number: US-ABBOTT-08P-163-0472849-00

PATIENT
  Sex: Female
  Weight: 50.394 kg

DRUGS (9)
  1. HUMIRA [Suspect]
     Indication: PSORIATIC ARTHROPATHY
     Route: 050
  2. HUMIRA [Suspect]
     Indication: PSORIASIS
  3. METHOTREXATE [Concomitant]
     Indication: PSORIATIC ARTHROPATHY
     Route: 048
  4. PREDNISONE TAB [Concomitant]
     Indication: PSORIATIC ARTHROPATHY
     Dosage: SLIDING SCALE
     Route: 048
  5. FOLIC ACID [Concomitant]
     Indication: VITAMIN SUPPLEMENTATION
     Route: 048
  6. OXCONTIN [Concomitant]
     Indication: PAIN
     Route: 048
  7. OXCYCODONE [Concomitant]
     Indication: PAIN
     Dosage: 1-2 Q4 HRS AS NEEDED
  8. CLONAZEPAM [Concomitant]
     Indication: ANXIETY
     Route: 048
  9. ZOLPIDEM TARTRATE [Concomitant]
     Indication: INSOMNIA
     Route: 048

REACTIONS (5)
  - ACCIDENTAL EXPOSURE [None]
  - COUGH [None]
  - INJECTION SITE HAEMATOMA [None]
  - INJECTION SITE PAIN [None]
  - INJECTION SITE URTICARIA [None]
